FAERS Safety Report 6801255-6 (Version None)
Quarter: 2010Q2

REPORT INFORMATION
  Report Type: 
  Country: None (occurrence: None)
  Receive Date: 20100629
  Receipt Date: 20100622
  Transmission Date: 20101027
  Serious: Yes (Hospitalization)
  Sender: FDA-Public Use
  Company Number: DE-SANOFI-AVENTIS-2010SA006915

PATIENT
  Age: 71 Year
  Sex: Female
  Weight: 94 kg

DRUGS (9)
  1. LANTUS [Suspect]
     Indication: DIABETES MELLITUS
     Dosage: DOSAGE: 0-0-32IU-0
     Route: 058
     Dates: start: 19940101
  2. LEVOTHYROXINE SODIUM/POTASSIUM IODIDE [Concomitant]
     Indication: DRUG USE FOR UNKNOWN INDICATION
     Dosage: DOSAGE: 100?G/150?G DAILY
     Route: 065
  3. HYDROCHLOROTHIAZIDE/RAMIPRIL [Concomitant]
     Indication: DRUG USE FOR UNKNOWN INDICATION
     Dosage: DAILY DOSE 5MG/25MG 1-0-0-0
     Route: 065
  4. RAMIPRIL [Concomitant]
     Indication: DRUG USE FOR UNKNOWN INDICATION
     Route: 065
  5. TORASEMIDE [Concomitant]
     Indication: DRUG USE FOR UNKNOWN INDICATION
     Route: 065
  6. AMLODIPINE [Concomitant]
     Indication: DRUG USE FOR UNKNOWN INDICATION
     Route: 065
  7. GLIMEPIRIDE [Concomitant]
     Indication: DRUG USE FOR UNKNOWN INDICATION
     Dosage: DOSAGE: 1/2-0-0-0
     Route: 065
  8. HUMALOG [Concomitant]
     Indication: DRUG USE FOR UNKNOWN INDICATION
     Dosage: DOSAGE: MORNING - ACCORDING TO PLAN DOSE:100 INTERNATIONAL UNIT(S)/MILLILITRE
     Route: 065
  9. INSULIN HUMAN REGULAR [Concomitant]
     Indication: DRUG USE FOR UNKNOWN INDICATION
     Dosage: DOSAGE: ACCORDING TO PLAN DOSE:100 INTERNATIONAL UNIT(S)/MILLILITRE
     Route: 065

REACTIONS (1)
  - MUSCLE SPASMS [None]
